FAERS Safety Report 24537869 (Version 2)
Quarter: 2024Q4

REPORT INFORMATION
  Report Type: Spontaneous
  Country: IT (occurrence: IT)
  Receive Date: 20241023
  Receipt Date: 20241106
  Transmission Date: 20250115
  Serious: Yes (Other)
  Sender: TEVA
  Company Number: IT-TEVA-VS-3254642

PATIENT
  Age: 35 Year
  Sex: Male

DRUGS (3)
  1. FLUOROURACIL [Suspect]
     Active Substance: FLUOROURACIL
     Indication: Medullary thyroid cancer
     Route: 065
     Dates: start: 2022
  2. DACARBAZINE CITRATE [Suspect]
     Active Substance: DACARBAZINE CITRATE
     Indication: Medullary thyroid cancer
     Route: 065
     Dates: start: 2022
  3. SELPERCATINIB [Suspect]
     Active Substance: SELPERCATINIB
     Indication: Medullary thyroid cancer
     Route: 065
     Dates: start: 2020

REACTIONS (2)
  - Drug ineffective [Unknown]
  - Drug resistance [Unknown]
